FAERS Safety Report 26002523 (Version 3)
Quarter: 2025Q4

REPORT INFORMATION
  Report Type: Spontaneous
  Country: JP (occurrence: JP)
  Receive Date: 20251105
  Receipt Date: 20251119
  Transmission Date: 20260118
  Serious: Yes (Death, Other)
  Sender: MERCK SHARP & DOHME LLC
  Company Number: JP-009507513-2347094

PATIENT
  Age: 72 Year
  Sex: Male

DRUGS (2)
  1. KEYTRUDA [Suspect]
     Active Substance: PEMBROLIZUMAB
     Indication: Lung adenocarcinoma stage IV
     Route: 041
     Dates: start: 20250924, end: 20251001
  2. SILODOSIN [Concomitant]
     Active Substance: SILODOSIN

REACTIONS (9)
  - Cytokine release syndrome [Fatal]
  - Pyelonephritis [Unknown]
  - Pyrexia [Fatal]
  - Urinary tract infection [Unknown]
  - Back pain [Unknown]
  - Hypoaesthesia [Unknown]
  - Malignant neoplasm progression [Unknown]
  - Asthenia [Unknown]
  - Peripheral swelling [Unknown]

NARRATIVE: CASE EVENT DATE: 20250101
